FAERS Safety Report 5584739-0 (Version None)
Quarter: 2008Q1

REPORT INFORMATION
  Report Type: 
  Country: None (occurrence: None)
  Receive Date: 20080103
  Receipt Date: 20071218
  Transmission Date: 20080703
  Serious: Yes (Hospitalization)
  Sender: FDA-Public Use
  Company Number: 2007-04053

PATIENT
  Sex: Female

DRUGS (4)
  1. VELCADE [Suspect]
     Indication: MULTIPLE MYELOMA
     Dosage: 2.07 MG/M2, INTRAVENOUS
     Route: 042
     Dates: start: 20071114, end: 20071114
  2. THALIDOMIDE [Suspect]
     Indication: MULTIPLE MYELOMA
     Dosage: 100.00 MG, ORAL
     Route: 048
     Dates: start: 20071114, end: 20071130
  3. DEXAMETHASONE TAB [Suspect]
     Indication: MULTIPLE MYELOMA
     Dosage: 40.00 MG, ORAL
     Route: 048
     Dates: start: 20071114, end: 20071115
  4. ENOXAPARIN SODIUM [Concomitant]

REACTIONS (5)
  - DIVERTICULITIS [None]
  - DIVERTICULUM [None]
  - LUNG DISORDER [None]
  - PERIDIVERTICULITIS [None]
  - SEROSITIS [None]
